FAERS Safety Report 7054359-X (Version None)
Quarter: 2010Q4

REPORT INFORMATION
  Report Type: 
  Country: None (occurrence: None)
  Receive Date: 20101020
  Receipt Date: 20100921
  Transmission Date: 20110411
  Serious: No
  Sender: FDA-Public Use
  Company Number: US-BAYER-201020332BCC

PATIENT
  Age: 33 Year
  Sex: Female
  Weight: 53 kg

DRUGS (1)
  1. ALEVE (CAPLET) [Suspect]
     Indication: PAIN
     Dosage: TOTAL DAILY DOSE: 1540 MG  UNIT DOSE: 220 MG
     Route: 048
     Dates: start: 20100920

REACTIONS (1)
  - NO ADVERSE EVENT [None]
